FAERS Safety Report 25220717 (Version 2)
Quarter: 2025Q2

REPORT INFORMATION
  Report Type: Spontaneous
  Country: RU (occurrence: RU)
  Receive Date: 20250421
  Receipt Date: 20250510
  Transmission Date: 20250716
  Serious: Yes (Hospitalization, Other)
  Sender: SANOFI AVENTIS
  Company Number: RU-MLMSERVICE-20250411-PI466899-00177-1

PATIENT
  Age: 67 Year
  Sex: Female

DRUGS (11)
  1. RIFAMPIN [Interacting]
     Active Substance: RIFAMPIN
     Indication: Tuberculosis
     Dosage: 450 MG, QD (IN THE MORNING ON AN EMPTY STOMACH)
     Dates: start: 202307
  2. HYDROCORTISONE [Interacting]
     Active Substance: HYDROCORTISONE
     Indication: Primary adrenal insufficiency
     Dosage: 100 MG, QID (BY STREAM INFUSION)
     Route: 041
     Dates: start: 202210
  3. HYDROCORTISONE [Interacting]
     Active Substance: HYDROCORTISONE
     Indication: Adrenocortical insufficiency acute
     Dosage: 20 MG, QD (10 MG IN THE MORNING, 5 MG AT LUNCH, 5 MG IN THE EVENING)
     Dates: start: 2022
  4. HYDROCORTISONE [Interacting]
     Active Substance: HYDROCORTISONE
     Dosage: 20 MG, QD (10 MG IN THE MORNING, 5 MG AT LUNCHTIME, 5 MG IN THE EVENING)
     Dates: start: 2022
  5. HYDROCORTISONE [Interacting]
     Active Substance: HYDROCORTISONE
     Dosage: 30 MG, QD (15 MG IN THE MORNING, 7.5 MG IN THE AFTERNOON, 7.5 MG IN THE EVENING)
     Dates: start: 2023
  6. FLUDROCORTISONE [Interacting]
     Active Substance: FLUDROCORTISONE
     Indication: Primary adrenal insufficiency
     Dosage: UNK, QD  (25-50 MG IN THE MORNING, WITH DOSE ADJUSTMENT UNDER THE CONTROL OF WELL-BEING.)
     Dates: start: 202210
  7. FLUDROCORTISONE [Interacting]
     Active Substance: FLUDROCORTISONE
     Indication: Adrenocortical insufficiency acute
     Dosage: 25 MG, QD (IN THE MORNING)
     Dates: start: 2022
  8. FLUDROCORTISONE [Interacting]
     Active Substance: FLUDROCORTISONE
     Dosage: 50 MG, QD (IN THE MORNING)
     Dates: start: 2023
  9. ISONIAZID [Concomitant]
     Active Substance: ISONIAZID
     Indication: Tuberculosis
     Dosage: 300 MG, QD (IN THE MORNING AFTER MEALS).
     Dates: start: 202307
  10. PYRAZINAMIDE [Concomitant]
     Active Substance: PYRAZINAMIDE
     Indication: Tuberculosis
     Dosage: 1500 MG, QD (IN THE MORNING AFTER MEALS.)
     Dates: start: 202307
  11. ETHAMBUTOL [Concomitant]
     Active Substance: ETHAMBUTOL HYDROCHLORIDE
     Indication: Tuberculosis
     Dosage: 1200 MG, QD (AFTER LUNCH)
     Dates: start: 202307

REACTIONS (7)
  - Adrenocortical insufficiency acute [Recovering/Resolving]
  - Drug interaction [Recovering/Resolving]
  - Therapeutic product effect decreased [Recovering/Resolving]
  - Nausea [Recovering/Resolving]
  - Vomiting [Recovering/Resolving]
  - Asthenia [Recovering/Resolving]
  - Adrenal insufficiency [Recovering/Resolving]

NARRATIVE: CASE EVENT DATE: 20230101
